FAERS Safety Report 16900055 (Version 1)
Quarter: 2019Q4

REPORT INFORMATION
  Report Type: Spontaneous
  Country: US (occurrence: US)
  Receive Date: 20190815
  Receipt Date: 20190815
  Transmission Date: 20200122
  Serious: Yes (Hospitalization)
  Sender: FDA-Public Use
  Company Number: None

PATIENT
  Sex: Female

DRUGS (40)
  1. ALMOTRIPTAN. [Concomitant]
     Active Substance: ALMOTRIPTAN
  2. ARALAST [Concomitant]
     Active Substance: .ALPHA.1-PROTEINASE INHIBITOR HUMAN
  3. METOPROLOL SUCC [Concomitant]
     Active Substance: METOPROLOL SUCCINATE
  4. MYRBETRIQ [Concomitant]
     Active Substance: MIRABEGRON
  5. SAVELLA [Concomitant]
     Active Substance: MILNACIPRAN HYDROCHLORIDE
  6. COMBIVENT [Concomitant]
     Active Substance: ALBUTEROL SULFATE\IPRATROPIUM BROMIDE
  7. VESICARE [Concomitant]
     Active Substance: SOLIFENACIN SUCCINATE
  8. DIAZEPAM. [Concomitant]
     Active Substance: DIAZEPAM
  9. NIFEDIPINE. [Concomitant]
     Active Substance: NIFEDIPINE
  10. OMEPRAZOLE. [Concomitant]
     Active Substance: OMEPRAZOLE
  11. SPIRIVA [Concomitant]
     Active Substance: TIOTROPIUM BROMIDE MONOHYDRATE
  12. SYMBICORT [Concomitant]
     Active Substance: BUDESONIDE\FORMOTEROL FUMARATE DIHYDRATE
  13. VALSARTAN. [Concomitant]
     Active Substance: VALSARTAN
  14. REBIF [Suspect]
     Active Substance: INTERFERON BETA-1A
     Indication: MULTIPLE SCLEROSIS
     Route: 058
     Dates: start: 20180627, end: 201903
  15. CALCIUM 600 [Concomitant]
     Active Substance: CALCIUM
  16. VIT B-12 [Concomitant]
  17. IRBESARTAN. [Concomitant]
     Active Substance: IRBESARTAN
  18. NYSTOP [Concomitant]
     Active Substance: NYSTATIN
  19. VIT D-2 [Concomitant]
  20. WOMEN^S ONE [Concomitant]
  21. ALBUTEROL. [Concomitant]
     Active Substance: ALBUTEROL
  22. CALCIUM D-3 [Concomitant]
  23. VENTOLIN [Concomitant]
     Active Substance: ALBUTEROL SULFATE
  24. ELIQUIS [Concomitant]
     Active Substance: APIXABAN
  25. PROBIOTIC [Concomitant]
     Active Substance: PROBIOTICS NOS
  26. AJOVY [Concomitant]
     Active Substance: FREMANEZUMAB-VFRM
  27. BISACODYL. [Concomitant]
     Active Substance: BISACODYL
  28. ZINC SULFATE. [Concomitant]
     Active Substance: ZINC SULFATE
  29. CULTURELLE [Concomitant]
     Active Substance: LACTOBACILLUS RHAMNOSUS
  30. FUROSEMIDE. [Concomitant]
     Active Substance: FUROSEMIDE
  31. LIDOCAINE/PRILOCAINE [Concomitant]
     Active Substance: LIDOCAINE\PRILOCAINE
  32. ONDANSETRON [Concomitant]
     Active Substance: ONDANSETRON
  33. PANTOPRAZOLE [Concomitant]
     Active Substance: PANTOPRAZOLE
  34. POTASSIUM [Concomitant]
     Active Substance: POTASSIUM
  35. AMMONIUM LAC [Concomitant]
  36. AZELASTINE. [Concomitant]
     Active Substance: AZELASTINE HYDROCHLORIDE
  37. VIT D-3 [Concomitant]
  38. DALIRESP [Concomitant]
     Active Substance: ROFLUMILAST
  39. LEVOCETIRIZINE [Concomitant]
     Active Substance: LEVOCETIRIZINE
  40. METOPROLOL TART [Concomitant]
     Active Substance: METOPROLOL TARTRATE

REACTIONS (1)
  - Hospitalisation [None]
